FAERS Safety Report 22346034 (Version 1)
Quarter: 2023Q2

REPORT INFORMATION
  Report Type: Spontaneous
  Country: US (occurrence: US)
  Receive Date: 20230519
  Receipt Date: 20230519
  Transmission Date: 20230721
  Serious: Yes (Hospitalization)
  Sender: FDA-Public Use
  Company Number: US-BRISTOL-MYERS SQUIBB COMPANY-2023-068901

PATIENT
  Age: 72 Year
  Sex: Female

DRUGS (1)
  1. POMALYST [Suspect]
     Active Substance: POMALIDOMIDE
     Indication: Plasma cell leukaemia
     Dosage: TAKE 1 CAPSULE BY MOUTH ON AN EMPTY STOMACH DAILY FOR 21 DAYS, OFF 7 DAYS
     Route: 048

REACTIONS (1)
  - Red blood cell count decreased [Recovering/Resolving]
